FAERS Safety Report 9821809 (Version 1)
Quarter: 2014Q1

REPORT INFORMATION
  Report Type: Spontaneous
  Country: CA (occurrence: CA)
  Receive Date: 20140116
  Receipt Date: 20140116
  Transmission Date: 20141002
  Serious: Yes (Hospitalization)
  Sender: FDA-Public Use
  Company Number: CA-PFIZER INC-2014011642

PATIENT
  Age: 76 Year
  Sex: Female

DRUGS (9)
  1. TECTA [Suspect]
     Dosage: 40 MG, 2X/DAY
     Route: 048
     Dates: start: 201212, end: 201212
  2. BISOPROLOL [Concomitant]
  3. ATORVASTATIN [Concomitant]
  4. GLICLAZIDE [Concomitant]
  5. CLONAZEPAM [Concomitant]
  6. ISOSORBIDE DINITRATE [Concomitant]
  7. SPIRONOLACTONE [Concomitant]
  8. RAMIPRIL [Concomitant]
  9. NITRO-DUR [Concomitant]

REACTIONS (1)
  - Palpitations [Recovered/Resolved]
